FAERS Safety Report 9500901 (Version 1)
Quarter: 2013Q1

REPORT INFORMATION
  Report Type: Spontaneous
  Country: US (occurrence: None)
  Receive Date: 20130109
  Receipt Date: 20130109
  Transmission Date: 20140127
  Serious: Yes (Hospitalization)
  Sender: FDA-Public Use
  Company Number: FK201201613

PATIENT
  Age: 63 Year
  Sex: Female
  Weight: 151.96 kg

DRUGS (1)
  1. PACLITAXEL [Suspect]
     Indication: OVARIAN CANCER
     Route: 042
     Dates: start: 20120522, end: 20120529

REACTIONS (3)
  - Diarrhoea [None]
  - Dehydration [None]
  - Electrolyte imbalance [None]
